FAERS Safety Report 19081926 (Version 2)
Quarter: 2021Q2

REPORT INFORMATION
  Report Type: Report from Study
  Country: DE (occurrence: DE)
  Receive Date: 20210401
  Receipt Date: 20210406
  Transmission Date: 20210717
  Serious: Yes (Hospitalization, Other)
  Sender: FDA-Public Use
  Company Number: DE-BRISTOL-MYERS SQUIBB COMPANY-BMS-2020-041799

PATIENT
  Age: 19 Year
  Sex: Female
  Weight: 54 kg

DRUGS (6)
  1. ABATACEPT [Suspect]
     Active Substance: ABATACEPT
     Dosage: 660 MILLIGRAM, Q4WK
     Route: 042
     Dates: start: 20190715
  2. ABATACEPT [Suspect]
     Active Substance: ABATACEPT
     Dosage: 620 MILLIGRAM, Q4WK
     Route: 042
     Dates: start: 20200706
  3. ABATACEPT [Suspect]
     Active Substance: ABATACEPT
     Dosage: 630 MILLIGRAM, Q4WK
     Route: 042
     Dates: start: 20200127
  4. ABATACEPT [Suspect]
     Active Substance: ABATACEPT
     Dosage: 630 MILLIGRAM, Q4WK
     Route: 042
  5. ABATACEPT [Suspect]
     Active Substance: ABATACEPT
     Dosage: 125 MILLIGRAM, QWK
     Route: 058
     Dates: start: 20210111
  6. ABATACEPT [Suspect]
     Active Substance: ABATACEPT
     Indication: JUVENILE IDIOPATHIC ARTHRITIS
     Dosage: 660 MILLIGRAM, Q4WK
     Route: 042
     Dates: start: 201012

REACTIONS (4)
  - Off label use [Unknown]
  - Iron deficiency anaemia [Unknown]
  - Major depression [Unknown]
  - Eosinophilia [Not Recovered/Not Resolved]

NARRATIVE: CASE EVENT DATE: 201910
